FAERS Safety Report 5616220-4 (Version None)
Quarter: 2008Q1

REPORT INFORMATION
  Report Type: 
  Country: None (occurrence: None)
  Receive Date: 20080204
  Receipt Date: 20080122
  Transmission Date: 20080703
  Serious: Yes (Hospitalization)
  Sender: FDA-Public Use
  Company Number: PL-JNJFOC-20070703356

PATIENT
  Age: 77 Year
  Sex: Male

DRUGS (9)
  1. DECITABINE (DECITABINE) LYOPHILIZED POWDER [Suspect]
     Indication: ACUTE MYELOID LEUKAEMIA
     Dosage: SEE IMAGE
     Route: 042
     Dates: start: 20070430, end: 20070504
  2. DECITABINE (DECITABINE) LYOPHILIZED POWDER [Suspect]
     Indication: ACUTE MYELOID LEUKAEMIA
     Dosage: SEE IMAGE
     Route: 042
     Dates: start: 20070611, end: 20070615
  3. DECITABINE (DECITABINE) LYOPHILIZED POWDER [Suspect]
     Indication: ACUTE MYELOID LEUKAEMIA
     Dosage: SEE IMAGE
     Route: 042
     Dates: start: 20070709, end: 20070713
  4. DECITABINE (DECITABINE) LYOPHILIZED POWDER [Suspect]
     Indication: ACUTE MYELOID LEUKAEMIA
     Dosage: SEE IMAGE
     Route: 042
     Dates: start: 20070903, end: 20070904
  5. DECITABINE (DECITABINE) LYOPHILIZED POWDER [Suspect]
     Indication: ACUTE MYELOID LEUKAEMIA
     Dosage: SEE IMAGE
     Route: 042
     Dates: start: 20071001, end: 20071005
  6. SPIRONOLACTONE [Concomitant]
  7. PERINDOPRIL (PERINDOPRIL) UNSPECIFIED [Concomitant]
  8. ENALAPRIL MALEATE (ENALAPRIL MALEATE) UNSPECIFIED) [Concomitant]
  9. NIFUROXAZIDE (NIFUROXAZIDE) UNSPECIFIED [Concomitant]

REACTIONS (8)
  - CARDIAC ARREST [None]
  - CULTURE THROAT POSITIVE [None]
  - HAEMOGLOBIN DECREASED [None]
  - MORAXELLA INFECTION [None]
  - OESOPHAGITIS [None]
  - ORAL CANDIDIASIS [None]
  - PLATELET COUNT DECREASED [None]
  - WHITE BLOOD CELL COUNT DECREASED [None]
